FAERS Safety Report 4470684-0 (Version None)
Quarter: 2004Q4

REPORT INFORMATION
  Report Type: 
  Country: None (occurrence: None)
  Receive Date: 20041006
  Receipt Date: 20041006
  Transmission Date: 20050328
  Serious: Yes (Hospitalization)
  Sender: FDA-Public Use
  Company Number: None

PATIENT
  Age: 58 Year
  Sex: Female
  Weight: 62.5964 kg

DRUGS (2)
  1. VIOXX [Suspect]
     Indication: ARTHRITIS
     Dosage: 1 A DAY
     Dates: start: 20001005, end: 20040929
  2. VIOXX [Suspect]
     Indication: INTERVERTEBRAL DISC DEGENERATION
     Dosage: 1 A DAY
     Dates: start: 20001005, end: 20040929

REACTIONS (12)
  - CHEST PAIN [None]
  - DIZZINESS [None]
  - FEELING ABNORMAL [None]
  - FLATULENCE [None]
  - HYPERHIDROSIS [None]
  - HYPOAESTHESIA [None]
  - INFLAMMATION [None]
  - MARKEDLY REDUCED DIETARY INTAKE [None]
  - NAUSEA [None]
  - OESOPHAGEAL DISORDER [None]
  - PAIN [None]
  - PALPITATIONS [None]
